FAERS Safety Report 13084244 (Version 1)
Quarter: 2017Q1

REPORT INFORMATION
  Report Type: Spontaneous
  Country: US (occurrence: US)
  Receive Date: 20170101
  Receipt Date: 20170101
  Transmission Date: 20170428
  Serious: Yes (Disabling)
  Sender: FDA-Public Use
  Company Number: None

PATIENT
  Age: 47 Year
  Sex: Female
  Weight: 51.75 kg

DRUGS (5)
  1. FLEXERIL [Concomitant]
     Active Substance: CYCLOBENZAPRINE HYDROCHLORIDE
  2. LEVOFLAXACIN [Suspect]
     Active Substance: LEVOFLOXACIN
     Indication: SINUSITIS
     Dosage: ?          QUANTITY:10 TABLET(S);?
     Route: 048
  3. TOPAMAX [Concomitant]
     Active Substance: TOPIRAMATE
  4. RESTORIL [Concomitant]
     Active Substance: TEMAZEPAM
  5. IMITREX [Concomitant]
     Active Substance: SUMATRIPTAN SUCCINATE

REACTIONS (7)
  - Neuropathy peripheral [None]
  - Chest pain [None]
  - Sinusitis [None]
  - Anxiety [None]
  - Renal pain [None]
  - Confusional state [None]
  - Hypoaesthesia [None]

NARRATIVE: CASE EVENT DATE: 20161008
